FAERS Safety Report 4450297-7 (Version None)
Quarter: 2004Q3

REPORT INFORMATION
  Report Type: 
  Country: None (occurrence: None)
  Receive Date: 20040914
  Receipt Date: 20040831
  Transmission Date: 20050211
  Serious: No
  Sender: FDA-Public Use
  Company Number: 04P-167-0272345-00

PATIENT
  Age: 41 Year
  Sex: Female
  Weight: 114 kg

DRUGS (2)
  1. MERIDIA [Suspect]
     Indication: WEIGHT DECREASED
     Dosage: 10 MG, 1 IN 1 D, PER ORAL
     Route: 048
     Dates: start: 20040131, end: 20040203
  2. ACETAMINOPHEN AND CODEINE PHOSPHATE [Concomitant]

REACTIONS (2)
  - ABDOMINAL DISTENSION [None]
  - ABDOMINAL PAIN [None]
